FAERS Safety Report 6825874-6 (Version None)
Quarter: 2010Q3

REPORT INFORMATION
  Report Type: 
  Country: None (occurrence: None)
  Receive Date: 20100707
  Receipt Date: 20100707
  Transmission Date: 20110219
  Serious: No
  Sender: FDA-Public Use
  Company Number: None

PATIENT
  Age: 50 Year
  Sex: Female
  Weight: 58.9676 kg

DRUGS (2)
  1. AMBIEN [Suspect]
     Dosage: EVERY NIGHT BY MOUTH
     Route: 048
     Dates: start: 20090101, end: 20100101
  2. LUNESTA [Suspect]
     Dosage: 3 MG EVERY NIGHT BY MOUTH
     Route: 048
     Dates: start: 20100101

REACTIONS (2)
  - ABNORMAL SLEEP-RELATED EVENT [None]
  - AMNESIA [None]
